FAERS Safety Report 8596777-4 (Version None)
Quarter: 2012Q3

REPORT INFORMATION
  Report Type: 
  Country: None (occurrence: None)
  Receive Date: 20120815
  Receipt Date: 20120806
  Transmission Date: 20120928
  Serious: Yes (Other)
  Sender: FDA-Public Use
  Company Number: US-ASTRAZENECA-2012SE55365

PATIENT
  Age: 66 Year
  Sex: Male

DRUGS (1)
  1. SYMBICORT [Suspect]
     Dosage: UNKNOWN
     Route: 055

REACTIONS (3)
  - NEOPLASM MALIGNANT [None]
  - DIABETES MELLITUS [None]
  - GENERAL PHYSICAL HEALTH DETERIORATION [None]
